FAERS Safety Report 4317618-7 (Version None)
Quarter: 2004Q1

REPORT INFORMATION
  Report Type: 
  Country: None (occurrence: None)
  Receive Date: 20040315
  Receipt Date: 20040310
  Transmission Date: 20041129
  Serious: Yes (Hospitalization)
  Sender: FDA-Public Use
  Company Number: 200410964FR

PATIENT
  Age: 89 Year
  Sex: Female

DRUGS (2)
  1. FUROSEMIDE [Suspect]
     Route: 048
     Dates: end: 20030913
  2. COAPROVEL [Suspect]
     Route: 048
     Dates: end: 20030913

REACTIONS (1)
  - RENAL FAILURE [None]
